FAERS Safety Report 8319834-6 (Version None)
Quarter: 2012Q2

REPORT INFORMATION
  Report Type: 
  Country: None (occurrence: None)
  Receive Date: 20120427
  Receipt Date: 20120424
  Transmission Date: 20120825
  Serious: No
  Sender: FDA-Public Use
  Company Number: US-PFIZER INC-2012101663

PATIENT
  Sex: Female
  Weight: 72.109 kg

DRUGS (1)
  1. ALAVERT [Suspect]
     Indication: HYPERSENSITIVITY
     Dosage: UNK, AS NEEDED
     Route: 048
     Dates: end: 20111001

REACTIONS (1)
  - DRUG INEFFECTIVE [None]
